FAERS Safety Report 18623636 (Version 1)
Quarter: 2020Q4

REPORT INFORMATION
  Report Type: Spontaneous
  Country: US (occurrence: US)
  Receive Date: 20201216
  Receipt Date: 20201216
  Transmission Date: 20210114
  Serious: No
  Sender: FDA-Public Use
  Company Number: US-PERRIGO-20US012700

PATIENT
  Age: 66 Year
  Sex: Female
  Weight: 68.03 kg

DRUGS (3)
  1. LEVOTHYROXINE. [Concomitant]
     Active Substance: LEVOTHYROXINE
     Indication: HYPOTHYROIDISM
     Dosage: UNK, UNK
     Route: 048
  2. STIE-CORT [Suspect]
     Active Substance: HYDROCORTISONE
     Indication: ARTHROPOD STING
     Dosage: SMALL AMOUNT, QD
     Route: 061
     Dates: start: 20200831, end: 20200901
  3. MONOPRIL [Concomitant]
     Active Substance: FOSINOPRIL SODIUM
     Indication: HYPERTENSION
     Dosage: UNK, UNK
     Route: 048

REACTIONS (1)
  - Application site pain [Recovered/Resolved]

NARRATIVE: CASE EVENT DATE: 20200831
